FAERS Safety Report 24541343 (Version 1)
Quarter: 2024Q4

REPORT INFORMATION
  Report Type: Spontaneous
  Country: JP (occurrence: JP)
  Receive Date: 20241023
  Receipt Date: 20241023
  Transmission Date: 20250115
  Serious: Yes (Hospitalization)
  Sender: EISAI
  Company Number: JP-Eisai-202409086_LEN_P_1

PATIENT
  Age: 89 Year
  Sex: Male

DRUGS (2)
  1. LENVATINIB [Suspect]
     Active Substance: LENVATINIB
     Indication: Papillary thyroid cancer
     Dosage: DOSE AND FREQUENCY UNKNOWN
     Route: 048
  2. LENVATINIB [Suspect]
     Active Substance: LENVATINIB
     Dosage: DOSE UNKNOWN?ON A 5-DAY-ON AND 2-DAY-OFF SCHEDULE
     Route: 048

REACTIONS (2)
  - Nephrotic syndrome [Recovering/Resolving]
  - Thrombotic microangiopathy [Recovering/Resolving]
